FAERS Safety Report 7337098-7 (Version None)
Quarter: 2011Q1

REPORT INFORMATION
  Report Type: 
  Country: None (occurrence: None)
  Receive Date: 20110224
  Receipt Date: 20110209
  Transmission Date: 20110831
  Serious: Yes (Other)
  Sender: FDA-Public Use
  Company Number: AUR-APL-2011-00509

PATIENT
  Age: 49 Year
  Sex: Female

DRUGS (3)
  1. METOPROLOL SUCCINATE [Suspect]
  2. LEVOTHYROXINE SODIUM [Suspect]
  3. LIPITOR [Suspect]

REACTIONS (2)
  - ABDOMINAL DISCOMFORT [None]
  - PAIN IN EXTREMITY [None]
